FAERS Safety Report 8967987 (Version 1)
Quarter: 2012Q4

REPORT INFORMATION
  Report Type: Spontaneous
  Country: DE (occurrence: None)
  Receive Date: 20121210
  Receipt Date: 20121210
  Transmission Date: 20130627
  Serious: Yes (Hospitalization)
  Sender: FDA-Public Use
  Company Number: AUR-APL-2012-05158

PATIENT
  Age: 73 Year
  Sex: Female
  Weight: 95 kg

DRUGS (3)
  1. TERBINAFINE [Suspect]
     Indication: DRUG USE FOR UNKNOWN INDICATION
     Route: 048
  2. IBUPROFEN [Suspect]
     Indication: INTERVERTEBRAL FORAMINAL ENCROACHMENT
     Route: 048
  3. IBUPROFEN [Suspect]
     Indication: PAIN
     Route: 048

REACTIONS (1)
  - Hepatitis cholestatic [None]
